FAERS Safety Report 4495405-7 (Version None)
Quarter: 2004Q4

REPORT INFORMATION
  Report Type: 
  Country: None (occurrence: None)
  Receive Date: 20041108
  Receipt Date: 19990408
  Transmission Date: 20050328
  Serious: Yes (Life-Threatening, Hospitalization, Other)
  Sender: FDA-Public Use
  Company Number: 99BR-10086

PATIENT
  Sex: Male

DRUGS (1)
  1. VOLTAREN [Suspect]
     Indication: BACK PAIN
     Dosage: 75 MG, ONCE/SINGLE
     Route: 030
     Dates: start: 19990331, end: 19990331

REACTIONS (10)
  - HEPATIC FUNCTION ABNORMAL [None]
  - INJECTION SITE ABSCESS [None]
  - INJECTION SITE ERYTHEMA [None]
  - INJECTION SITE INFECTION [None]
  - INJECTION SITE NECROSIS [None]
  - INJECTION SITE SWELLING [None]
  - PAIN [None]
  - PYREXIA [None]
  - SCAR [None]
  - SURGERY [None]
